FAERS Safety Report 24327457 (Version 1)
Quarter: 2024Q3

REPORT INFORMATION
  Report Type: Spontaneous
  Country: US (occurrence: None)
  Receive Date: 20240916
  Receipt Date: 20240916
  Transmission Date: 20241016
  Serious: No
  Sender: Public
  Company Number: None

PATIENT
  Age: 42 Year
  Sex: Male
  Weight: 92.7 kg

DRUGS (4)
  1. OTEZLA [Suspect]
     Active Substance: APREMILAST
     Indication: Psoriasis
     Dosage: 30 MG TWICE A DAY ORAL?
     Route: 048
     Dates: start: 20240711
  2. CVS IMMUNE SUPPORT VITAMIN C [Concomitant]
  3. BETAMETHASONE DIPROPIONATE AUG EXTERNAL LOTION [Concomitant]
  4. BETAMETHASONE DIPROPIONATE AUG EXTERNAL OINTMENT [Concomitant]

REACTIONS (1)
  - Acne [None]

NARRATIVE: CASE EVENT DATE: 20240731
